FAERS Safety Report 25651449 (Version 1)
Quarter: 2025Q3

REPORT INFORMATION
  Report Type: Spontaneous
  Country: BR (occurrence: BR)
  Receive Date: 20250806
  Receipt Date: 20250806
  Transmission Date: 20251020
  Serious: Yes (Death, Other)
  Sender: AMGEN
  Company Number: BR-AMGEN-BRASP2025151976

PATIENT

DRUGS (1)
  1. TRASTUZUMAB [Suspect]
     Active Substance: TRASTUZUMAB
     Indication: Gastric cancer
     Route: 065

REACTIONS (9)
  - Death [Fatal]
  - Chronic hepatic failure [Fatal]
  - Hepatic encephalopathy [Unknown]
  - Metastases to liver [Unknown]
  - Ascites [Unknown]
  - Portal hypertension [Unknown]
  - Liver disorder [Unknown]
  - Varices oesophageal [Unknown]
  - Splenomegaly [Unknown]
